FAERS Safety Report 10143046 (Version 2)
Quarter: 2014Q2

REPORT INFORMATION
  Report Type: Spontaneous
  Country: DE (occurrence: DE)
  Receive Date: 20140430
  Receipt Date: 20140625
  Transmission Date: 20141212
  Serious: Yes (Hospitalization, Other)
  Sender: FDA-Public Use
  Company Number: DE-MERCK-1404DEU014598

PATIENT
  Age: 56 Year
  Sex: Male
  Weight: 83 kg

DRUGS (9)
  1. PEGINTRON [Suspect]
     Indication: CHRONIC HEPATITIS C
     Dosage: 100 MICROGRAM, QW; FORMULATION: PRE FILLED SYRINGE
     Route: 058
     Dates: start: 20131202
  2. PEGINTRON [Suspect]
     Indication: CHRONIC HEPATITIS C
     Dosage: 100 MICROGRAM, QW
     Route: 058
  3. RIBAVIRIN [Suspect]
     Indication: CHRONIC HEPATITIS C
     Dosage: 2 DF, BID
     Route: 048
  4. VICTRELIS [Suspect]
     Indication: CHRONIC HEPATITIS C
     Dosage: 1 DF, TID
     Route: 048
  5. VICTRELIS [Suspect]
     Indication: HEPATIC CIRRHOSIS
  6. PANTOZOL [Concomitant]
     Indication: GASTRIC DISORDER
     Dosage: 40 MG, QD
     Route: 048
  7. GABAPENTIN [Concomitant]
     Indication: POLYNEUROPATHY
     Dosage: 900 MG, TID
     Route: 048
  8. DOCITON [Concomitant]
     Indication: VARICES OESOPHAGEAL
     Dosage: 10 MG, QD
     Route: 048
  9. BIFITERAL [Concomitant]
     Indication: HEPATIC CIRRHOSIS
     Dosage: 60 ML, TID
     Route: 048

REACTIONS (11)
  - Oedema [Unknown]
  - Performance status decreased [Recovered/Resolved]
  - Pancytopenia [Not Recovered/Not Resolved]
  - Chronic hepatitis C [Recovered/Resolved]
  - Hepatic cirrhosis [Recovered/Resolved]
  - Chronic hepatitis C [Recovered/Resolved]
  - Hepatic cirrhosis [Recovered/Resolved]
  - Asthenia [Unknown]
  - Fatigue [Recovered/Resolved]
  - Depression [Recovered/Resolved]
  - Pneumonia [Recovered/Resolved]
